FAERS Safety Report 24851765 (Version 1)
Quarter: 2025Q1

REPORT INFORMATION
  Report Type: Spontaneous
  Country: BR (occurrence: BR)
  Receive Date: 20250116
  Receipt Date: 20250116
  Transmission Date: 20250409
  Serious: Yes (Hospitalization, Other)
  Sender: SANDOZ
  Company Number: BR-SANDOZ-SDZ2025BR001605

PATIENT
  Age: 25 Year
  Sex: Female

DRUGS (3)
  1. ZOLPIDEM [Suspect]
     Active Substance: ZOLPIDEM TARTRATE
     Indication: Product used for unknown indication
     Dosage: 150 MG, QD
     Route: 065
  2. ZOLPIDEM [Suspect]
     Active Substance: ZOLPIDEM TARTRATE
     Dosage: 20 MG, QD
     Route: 065
  3. ZOLPIDEM [Suspect]
     Active Substance: ZOLPIDEM TARTRATE
     Dosage: 800 MG, QD
     Route: 065

REACTIONS (10)
  - Drug abuse [Unknown]
  - Dependence [Unknown]
  - Thermal burn [Unknown]
  - Somnolence [Unknown]
  - Disturbance in attention [Unknown]
  - Fall [Unknown]
  - Amnesia [Unknown]
  - Inappropriate schedule of product administration [Unknown]
  - Intentional overdose [Unknown]
  - Product use issue [Unknown]
